FAERS Safety Report 15743094 (Version 1)
Quarter: 2018Q4

REPORT INFORMATION
  Report Type: Spontaneous
  Country: JP (occurrence: JP)
  Receive Date: 20181220
  Receipt Date: 20181220
  Transmission Date: 20190205
  Serious: Yes (Other)
  Sender: FDA-Public Use
  Company Number: JP-ROCHE-2230631

PATIENT
  Sex: Male

DRUGS (2)
  1. COPEGUS [Suspect]
     Active Substance: RIBAVIRIN
     Indication: HEPATITIS C
     Dosage: DOSAGE IS UNCERTAIN.
     Route: 048
     Dates: start: 2011, end: 2012
  2. PEGASYS [Suspect]
     Active Substance: PEGINTERFERON ALFA-2A
     Indication: HEPATITIS C
     Dosage: DOSAGE IS UNCERTAIN.
     Route: 058
     Dates: start: 2011, end: 2012

REACTIONS (7)
  - Thrombosis [Unknown]
  - Acne [Unknown]
  - Head discomfort [Unknown]
  - Dysarthria [Unknown]
  - Pyrexia [Unknown]
  - Blood pressure increased [Unknown]
  - Abnormal sensation in eye [Unknown]
